FAERS Safety Report 19802565 (Version 1)
Quarter: 2021Q3

REPORT INFORMATION
  Report Type: Spontaneous
  Country: US (occurrence: US)
  Receive Date: 20210908
  Receipt Date: 20210908
  Transmission Date: 20211014
  Serious: Yes (Life-Threatening, Hospitalization, Disabling, Other)
  Sender: FDA-Public Use
  Company Number: None

PATIENT
  Age: 30 Year
  Sex: Male
  Weight: 67.95 kg

DRUGS (3)
  1. ELIQUIS [Suspect]
     Active Substance: APIXABAN
     Indication: DEEP VEIN THROMBOSIS
     Route: 048
     Dates: start: 20210831, end: 20210902
  2. ENOXAPARIN PF [Concomitant]
     Dates: start: 20210828, end: 20210831
  3. HEPARIN [Concomitant]
     Active Substance: HEPARIN SODIUM
     Dates: start: 20210827, end: 20210828

REACTIONS (4)
  - Tachypnoea [None]
  - Hyperhidrosis [None]
  - Subarachnoid haemorrhage [None]
  - Hypertension [None]

NARRATIVE: CASE EVENT DATE: 20210902
